FAERS Safety Report 9089334 (Version 2)
Quarter: 2013Q1

REPORT INFORMATION
  Report Type: Spontaneous
  Country: DE (occurrence: DE)
  Receive Date: 20130131
  Receipt Date: 20130320
  Transmission Date: 20140127
  Serious: Yes (Death)
  Sender: FDA-Public Use
  Company Number: DE-PFIZER INC-2013030450

PATIENT
  Age: 27 Year
  Sex: Female

DRUGS (1)
  1. CRIZOTINIB [Suspect]
     Indication: DIFFUSE LARGE B-CELL LYMPHOMA STAGE IV
     Dosage: 250 MG, 2X/DAY
     Route: 048

REACTIONS (3)
  - Off label use [Fatal]
  - Disease progression [Fatal]
  - Diffuse large B-cell lymphoma [Fatal]
